FAERS Safety Report 4384318-7 (Version None)
Quarter: 2004Q2

REPORT INFORMATION
  Report Type: 
  Country: None (occurrence: None)
  Receive Date: 20040618
  Receipt Date: 20040607
  Transmission Date: 20050107
  Serious: Yes (Hospitalization)
  Sender: FDA-Public Use
  Company Number: 04P-163-0263180-00

PATIENT
  Age: 71 Year
  Sex: Male
  Weight: 70.3075 kg

DRUGS (6)
  1. DEPAKOTE [Suspect]
     Indication: MIGRAINE
     Dosage: SEE IMAGE
     Route: 048
     Dates: start: 20000101, end: 20040501
  2. DEPAKOTE [Suspect]
     Indication: MIGRAINE
     Dosage: SEE IMAGE
     Route: 048
     Dates: start: 20040501
  3. MIRTAZAPINE [Concomitant]
  4. ANTIDEPRESSANT [Concomitant]
  5. CLOPIDOGREL BISULFATE [Concomitant]
  6. ATENOLOL [Concomitant]

REACTIONS (2)
  - DRUG EFFECT DECREASED [None]
  - THROAT CANCER [None]
